FAERS Safety Report 6848194-2 (Version None)
Quarter: 2010Q3

REPORT INFORMATION
  Report Type: 
  Country: None (occurrence: None)
  Receive Date: 20100716
  Receipt Date: 20100708
  Transmission Date: 20110219
  Serious: Yes (Hospitalization)
  Sender: FDA-Public Use
  Company Number: B0664323A

PATIENT
  Sex: Female

DRUGS (15)
  1. RANITIDINE HCL [Suspect]
     Indication: PRODUCT USED FOR UNKNOWN INDICATION
     Dosage: 1AMP SINGLE DOSE
     Route: 065
     Dates: start: 20051018, end: 20051018
  2. SOLU-MEDROL [Suspect]
     Indication: PRODUCT USED FOR UNKNOWN INDICATION
     Dosage: 120MG SINGLE DOSE
     Route: 065
     Dates: start: 20051018, end: 20051018
  3. POLARAMINE [Suspect]
     Indication: PRODUCT USED FOR UNKNOWN INDICATION
     Dosage: 1AMP SINGLE DOSE
     Route: 065
     Dates: start: 20051018, end: 20051018
  4. RANITIDINE HCL [Suspect]
     Dosage: 1AMP SINGLE DOSE
     Route: 065
     Dates: start: 20051115, end: 20051115
  5. POLARAMINE [Suspect]
     Dosage: 1AMP SINGLE DOSE
     Route: 065
     Dates: start: 20051115, end: 20051115
  6. SOLU-MEDROL [Suspect]
     Dosage: 60MG SINGLE DOSE
     Route: 065
     Dates: start: 20051115, end: 20051115
  7. PRIMPERAN TAB [Suspect]
     Indication: PRODUCT USED FOR UNKNOWN INDICATION
     Dosage: 2AMP SINGLE DOSE
     Route: 065
     Dates: start: 20051115, end: 20051115
  8. RANITIDINE HCL [Suspect]
     Dosage: 1AMP SINGLE DOSE
     Route: 065
     Dates: start: 20090904, end: 20090904
  9. POLARAMINE [Suspect]
     Dosage: 1AMP SINGLE DOSE
     Route: 065
     Dates: start: 20090904, end: 20090904
  10. TRANXENE [Suspect]
     Indication: PRODUCT USED FOR UNKNOWN INDICATION
     Dosage: 50MG SINGLE DOSE
     Route: 048
     Dates: start: 20090904, end: 20090904
  11. ZOPHREN [Suspect]
     Indication: PRODUCT USED FOR UNKNOWN INDICATION
     Dosage: 1AMP SINGLE DOSE
     Route: 065
     Dates: start: 20051018, end: 20051018
  12. ESTREVA [Concomitant]
     Dosage: 1APP PER DAY
     Route: 065
  13. ORACILLINE [Concomitant]
  14. TAXOL [Concomitant]
     Route: 065
  15. CARBOPLATIN [Concomitant]
     Route: 065

REACTIONS (7)
  - ANAPHYLACTIC SHOCK [None]
  - BACK PAIN [None]
  - HYPOTENSION [None]
  - LOSS OF CONSCIOUSNESS [None]
  - MALAISE [None]
  - SHOCK [None]
  - URTICARIA [None]
